FAERS Safety Report 24429749 (Version 2)
Quarter: 2024Q4

REPORT INFORMATION
  Report Type: Spontaneous
  Country: US (occurrence: US)
  Receive Date: 20241012
  Receipt Date: 20241022
  Transmission Date: 20250115
  Serious: No
  Sender: SANOFI AVENTIS
  Company Number: US-SA-2024SA284699

PATIENT
  Age: 16 Year
  Sex: Male

DRUGS (4)
  1. ALPROLIX [Suspect]
     Active Substance: EFTRENONACOG ALFA
     Indication: Factor IX deficiency
     Dosage: 4100 UNITS (1100 UNITS+3000UNITS) (3690-4510), QW
     Route: 042
     Dates: start: 202303
  2. ALPROLIX [Suspect]
     Active Substance: EFTRENONACOG ALFA
     Indication: Factor IX deficiency
     Dosage: 4100 UNITS (1100 UNITS+3000UNITS) (3690-4510), QW
     Route: 042
     Dates: start: 202303
  3. ALPROLIX [Suspect]
     Active Substance: EFTRENONACOG ALFA
     Dosage: 4100 UNITS (1100 UNITS+3000UNITS) (3690-4510), PRN (AS DIRECTED FOR BLEED TREATMENT)
     Route: 042
     Dates: start: 202303
  4. ALPROLIX [Suspect]
     Active Substance: EFTRENONACOG ALFA
     Dosage: 4100 UNITS (1100 UNITS+3000UNITS) (3690-4510), PRN (AS DIRECTED FOR BLEED TREATMENT)
     Route: 042
     Dates: start: 202303

REACTIONS (3)
  - Haemorrhage [Recovered/Resolved]
  - Weight decreased [Unknown]
  - Haemorrhage [Unknown]

NARRATIVE: CASE EVENT DATE: 20240913
